FAERS Safety Report 11036252 (Version 2)
Quarter: 2015Q2

REPORT INFORMATION
  Report Type: Spontaneous
  Country: US (occurrence: US)
  Receive Date: 20150415
  Receipt Date: 20150525
  Transmission Date: 20150821
  Serious: No
  Sender: FDA-Public Use
  Company Number: US-JNJFOC-20140203545

PATIENT
  Sex: Male

DRUGS (7)
  1. XARELTO [Suspect]
     Active Substance: RIVAROXABAN
     Indication: THROMBOSIS PROPHYLAXIS
     Route: 048
     Dates: start: 20140123, end: 20140127
  2. XARELTO [Suspect]
     Active Substance: RIVAROXABAN
     Indication: HIP ARTHROPLASTY
     Route: 048
     Dates: start: 20140123, end: 20140127
  3. CELEBREX [Concomitant]
     Active Substance: CELECOXIB
     Indication: PROCEDURAL PAIN
     Route: 065
  4. ZANTAC [Concomitant]
     Active Substance: RANITIDINE HYDROCHLORIDE
     Indication: DYSPEPSIA
     Route: 065
  5. SURFAK [Concomitant]
     Indication: CONSTIPATION
     Route: 065
  6. NICODERM CQ [Concomitant]
     Active Substance: NICOTINE
     Indication: NICOTINE DEPENDENCE
     Route: 065
  7. PERCOCET [Concomitant]
     Active Substance: ACETAMINOPHEN\OXYCODONE HYDROCHLORIDE
     Indication: PROCEDURAL PAIN
     Dosage: 5/325 1-2Q4
     Route: 065

REACTIONS (1)
  - Wound secretion [Recovered/Resolved]
